FAERS Safety Report 4870643-X (Version None)
Quarter: 2005Q4

REPORT INFORMATION
  Report Type: 
  Country: None (occurrence: None)
  Receive Date: 20051228
  Receipt Date: 20051130
  Transmission Date: 20060501
  Serious: Yes (Death, Hospitalization, Other)
  Sender: FDA-Public Use
  Company Number: USA050392607

PATIENT
  Age: 76 Year
  Sex: Female

DRUGS (4)
  1. FORTEO [Suspect]
     Indication: OSTEOPOROSIS
     Dosage: UNK
     Route: 065
     Dates: start: 20050304
  2. FORTEO PEN, 250MCG/ML (3ML) (FORTEO PEN, 250MCG/ML (3ML) [Concomitant]
  3. HYDROCODONE BITARTRATE [Concomitant]
  4. MIACALCIN [Concomitant]

REACTIONS (11)
  - ABDOMINAL PAIN UPPER [None]
  - ANAEMIA [None]
  - BONE MARROW DISORDER [None]
  - CHRONIC GASTROINTESTINAL BLEEDING [None]
  - DIARRHOEA [None]
  - INTRACARDIAC THROMBUS [None]
  - MALAISE [None]
  - MYOCARDIAL INFARCTION [None]
  - PHARMACEUTICAL PRODUCT COMPLAINT [None]
  - PULMONARY FIBROSIS [None]
  - SHORT-BOWEL SYNDROME [None]
